FAERS Safety Report 13716964 (Version 1)
Quarter: 2017Q3

REPORT INFORMATION
  Report Type: Other
  Country: DE (occurrence: DE)
  Receive Date: 20170705
  Receipt Date: 20170705
  Transmission Date: 20171127
  Serious: No
  Sender: FDA-Public Use
  Company Number: DE-LUPIN PHARMACEUTICALS INC.-2017-02495

PATIENT

DRUGS (7)
  1. MEVINACOR [Suspect]
     Active Substance: LOVASTATIN
     Indication: TYPE IIA HYPERLIPIDAEMIA
     Dates: start: 1992
  2. SIMVASTATIN. [Suspect]
     Active Substance: SIMVASTATIN
     Dosage: 20 MG, UNK
     Route: 065
     Dates: start: 1998
  3. FLUVASTATIN [Suspect]
     Active Substance: FLUVASTATIN SODIUM
     Indication: TYPE IIA HYPERLIPIDAEMIA
     Dosage: 20 MG, UNK
     Route: 065
     Dates: start: 2000
  4. PRAVASTATIN. [Suspect]
     Active Substance: PRAVASTATIN
     Indication: TYPE IIA HYPERLIPIDAEMIA
     Dosage: UNK
     Route: 065
     Dates: start: 1999
  5. ATORVASTATIN [Suspect]
     Active Substance: ATORVASTATIN
     Indication: TYPE IIA HYPERLIPIDAEMIA
     Dosage: UNK
     Route: 065
     Dates: start: 2000
  6. CRESTOR [Suspect]
     Active Substance: ROSUVASTATIN CALCIUM
     Indication: TYPE IIA HYPERLIPIDAEMIA
     Dosage: UNK
     Route: 065
  7. EZETROL [Suspect]
     Active Substance: EZETIMIBE
     Indication: TYPE IIA HYPERLIPIDAEMIA
     Dosage: UNK
     Route: 065
     Dates: start: 2016

REACTIONS (1)
  - Myalgia [Recovered/Resolved]
